FAERS Safety Report 6007462-7 (Version None)
Quarter: 2008Q4

REPORT INFORMATION
  Report Type: 
  Country: None (occurrence: None)
  Receive Date: 20081217
  Receipt Date: 20080423
  Transmission Date: 20090506
  Serious: No
  Sender: FDA-Public Use
  Company Number: US-ASTRAZENECA-2008UW08262

PATIENT
  Age: 39 Year
  Sex: Male
  Weight: 120.2 kg

DRUGS (4)
  1. CRESTOR [Suspect]
     Indication: BLOOD CHOLESTEROL INCREASED
     Route: 048
     Dates: start: 20060101
  2. ALLEGRA [Concomitant]
  3. LUMAGAN [Concomitant]
  4. MULTI-VITAMIN [Concomitant]

REACTIONS (2)
  - MUSCLE TWITCHING [None]
  - MYALGIA [None]
